FAERS Safety Report 8552570-X (Version None)
Quarter: 2012Q3

REPORT INFORMATION
  Report Type: 
  Country: None (occurrence: None)
  Receive Date: 20120724
  Receipt Date: 20120724
  Transmission Date: 20120928
  Serious: No
  Sender: FDA-Public Use
  Company Number: None

PATIENT
  Age: 55 Year
  Sex: Male
  Weight: 106.5953 kg

DRUGS (1)
  1. ROCURONIUM BROMIDE [Suspect]
     Indication: SURGERY
     Dates: start: 20120705, end: 20120705

REACTIONS (1)
  - DRUG EFFECT DECREASED [None]
